FAERS Safety Report 9613535 (Version 1)
Quarter: 2013Q4

REPORT INFORMATION
  Report Type: Spontaneous
  Country: FR (occurrence: FR)
  Receive Date: 20131010
  Receipt Date: 20131010
  Transmission Date: 20140711
  Serious: Yes (Death, Hospitalization)
  Sender: FDA-Public Use
  Company Number: FR-B.I. PHARMACEUTICALS,INC./RIDGEFIELD-2013-FF-02450FF

PATIENT
  Age: 73 Year
  Sex: Female

DRUGS (5)
  1. PRADAXA [Suspect]
     Indication: ATRIAL FIBRILLATION
     Dosage: 220 MG
  2. BISOPROLOL [Concomitant]
     Indication: HYPERTENSION
  3. TRIATEC [Concomitant]
     Indication: HYPERTENSION
  4. METFORMIN [Concomitant]
     Indication: TYPE 2 DIABETES MELLITUS
  5. NEOMERCAZOLE [Concomitant]
     Indication: HYPERTHYROIDISM

REACTIONS (5)
  - Haemorrhagic transformation stroke [Fatal]
  - Hypertensive crisis [Fatal]
  - Coma [Fatal]
  - Ischaemic stroke [Unknown]
  - Hemiparesis [Unknown]
